FAERS Safety Report 11142723 (Version 4)
Quarter: 2017Q3

REPORT INFORMATION
  Report Type: Report from Study
  Country: BR (occurrence: BR)
  Receive Date: 20150527
  Receipt Date: 20170911
  Transmission Date: 20171127
  Serious: Yes (Hospitalization, Other)
  Sender: FDA-Public Use
  Company Number: PHHY2015BR060970

PATIENT
  Age: 86 Year
  Sex: Female
  Weight: 59 kg

DRUGS (3)
  1. CALCIUM +D3 [Suspect]
     Active Substance: CALCIUM\CHOLECALCIFEROL
     Indication: MINERAL SUPPLEMENTATION
     Dosage: UNK UNK, QD
     Route: 065
     Dates: start: 2014
  2. ACLASTA [Suspect]
     Active Substance: ZOLEDRONIC ACID
     Indication: OSTEOPOROSIS
     Dosage: 1 DF (5 MG/ 100 ML), Q12MO
     Route: 042
     Dates: start: 20140519
  3. ACLASTA [Suspect]
     Active Substance: ZOLEDRONIC ACID
     Dosage: 1 DF (5 MG/100 ML), Q12MO
     Route: 042

REACTIONS (12)
  - Breast cancer female [Recovered/Resolved with Sequelae]
  - Diabetes mellitus [Unknown]
  - Femur fracture [Recovering/Resolving]
  - Hypoaesthesia [Recovering/Resolving]
  - Skin sensitisation [Not Recovered/Not Resolved]
  - Myocardial infarction [Unknown]
  - Renal disorder [Unknown]
  - Drug hypersensitivity [Unknown]
  - Lung disorder [Unknown]
  - Fall [Recovering/Resolving]
  - Burning sensation [Unknown]
  - Pain [Not Recovered/Not Resolved]

NARRATIVE: CASE EVENT DATE: 201409
